FAERS Safety Report 6554854-3 (Version None)
Quarter: 2010Q1

REPORT INFORMATION
  Report Type: 
  Country: None (occurrence: None)
  Receive Date: 20100125
  Receipt Date: 20100115
  Transmission Date: 20100710
  Serious: Yes (Other)
  Sender: FDA-Public Use
  Company Number: OSCN-PR-1001L-0009

PATIENT
  Age: 50 Year
  Sex: Male

DRUGS (4)
  1. OMNISCAN [Suspect]
     Indication: DRUG USE FOR UNKNOWN INDICATION
     Dosage: SINGLE DOSE
     Dates: start: 20060801, end: 20060801
  2. DARBEPOIETIN ALPHA (ARANESP) [Concomitant]
  3. IRON GLUICONATE (FERRELECIT) [Concomitant]
  4. CALCITRIOL [Concomitant]

REACTIONS (4)
  - ANAEMIA [None]
  - HYPERPARATHYROIDISM [None]
  - INHIBITORY DRUG INTERACTION [None]
  - NEPHROGENIC SYSTEMIC FIBROSIS [None]
